FAERS Safety Report 23228759 (Version 1)
Quarter: 2023Q4

REPORT INFORMATION
  Report Type: Spontaneous
  Country: US (occurrence: None)
  Receive Date: 20231126
  Receipt Date: 20231126
  Transmission Date: 20240109
  Serious: No
  Sender: FDA-Public Use
  Company Number: US-ROCHE-3203247

PATIENT
  Sex: Female
  Weight: 55.842 kg

DRUGS (4)
  1. HERCEPTIN [Suspect]
     Active Substance: TRASTUZUMAB
     Indication: Breast cancer
     Dosage: YES
     Route: 041
     Dates: start: 201805
  2. HERCEPTIN [Suspect]
     Active Substance: TRASTUZUMAB
     Dosage: YES
     Route: 041
     Dates: start: 201805
  3. PERJETA [Suspect]
     Active Substance: PERTUZUMAB
     Indication: Breast cancer
     Dosage: YES
     Route: 042
     Dates: start: 201805
  4. PERJETA [Suspect]
     Active Substance: PERTUZUMAB
     Dosage: YES
     Route: 042
     Dates: start: 201805

REACTIONS (1)
  - Pain in extremity [Not Recovered/Not Resolved]

NARRATIVE: CASE EVENT DATE: 20200601
